FAERS Safety Report 22099754 (Version 1)
Quarter: 2023Q1

REPORT INFORMATION
  Report Type: Spontaneous
  Country: GB (occurrence: GB)
  Receive Date: 20230315
  Receipt Date: 20230315
  Transmission Date: 20230418
  Serious: Yes (Life-Threatening, Hospitalization, Disabling, Other)
  Sender: FDA-Public Use
  Company Number: None

PATIENT
  Age: 16 Year
  Sex: Male

DRUGS (1)
  1. FINASTERIDE [Suspect]
     Active Substance: FINASTERIDE
     Indication: Androgenetic alopecia
     Dosage: ?1MG OD; ;
     Dates: start: 20010101

REACTIONS (9)
  - Medication error [Unknown]
  - Psychotic disorder [Not Recovered/Not Resolved]
  - Loss of libido [Unknown]
  - Muscular weakness [Unknown]
  - Fatigue [Unknown]
  - Depression [Unknown]
  - Suicidal ideation [Unknown]
  - Insomnia [Unknown]
  - Bradyphrenia [Unknown]

NARRATIVE: CASE EVENT DATE: 20010101
